FAERS Safety Report 6694457-3 (Version None)
Quarter: 2010Q2

REPORT INFORMATION
  Report Type: 
  Country: None (occurrence: None)
  Receive Date: 20100423
  Receipt Date: 20100413
  Transmission Date: 20101027
  Serious: Yes (Other)
  Sender: FDA-Public Use
  Company Number: BR-PFIZER INC-2009293516

PATIENT
  Age: 47 Year
  Sex: Female
  Weight: 57 kg

DRUGS (2)
  1. CHAMPIX [Suspect]
     Indication: NICOTINE DEPENDENCE
     Dosage: 1 MG, 2X/DAY, EVERY 12 HOURS
     Route: 048
     Dates: start: 20090916, end: 20091121
  2. FORASEQ [Concomitant]
     Dosage: UNK
     Dates: start: 20080101

REACTIONS (4)
  - DYSPNOEA [None]
  - TACHYCARDIA [None]
  - THROAT TIGHTNESS [None]
  - WHEEZING [None]
